FAERS Safety Report 8500872-5 (Version None)
Quarter: 2012Q3

REPORT INFORMATION
  Report Type: 
  Country: None (occurrence: None)
  Receive Date: 20120710
  Receipt Date: 20120628
  Transmission Date: 20120928
  Serious: Yes (Other)
  Sender: FDA-Public Use
  Company Number: US-ROCHE-686318

PATIENT
  Age: 66 Year
  Sex: Female

DRUGS (5)
  1. HERCEPTIN [Suspect]
     Route: 042
  2. NAVELBINE [Suspect]
     Route: 042
  3. NAVELBINE [Suspect]
     Indication: BREAST CANCER
     Dosage: FREQ: EVERY OTHER WEEK
     Route: 042
  4. HERCEPTIN [Suspect]
     Indication: BREAST CANCER METASTATIC
     Route: 042
  5. AVASTIN [Suspect]
     Indication: PRODUCT USED FOR UNKNOWN INDICATION
     Route: 065

REACTIONS (5)
  - DRUG INEFFECTIVE [None]
  - NEOPLASM PROGRESSION [None]
  - MALAISE [None]
  - METASTASIS [None]
  - TUMOUR MARKER INCREASED [None]
